FAERS Safety Report 4280584-7 (Version None)
Quarter: 2004Q1

REPORT INFORMATION
  Report Type: 
  Country: None (occurrence: None)
  Receive Date: 20040128
  Receipt Date: 20040115
  Transmission Date: 20041129
  Serious: Yes (Death)
  Sender: FDA-Public Use
  Company Number: HYDM20040002

PATIENT
  Age: 27 Year
  Sex: Male

DRUGS (4)
  1. HYDROMORPHONE HCL [Suspect]
     Indication: PAIN
     Dosage: TABS IV
     Route: 042
  2. OXYCODONE HCL [Suspect]
  3. PROMETHAZINE [Suspect]
  4. DURAGESIC [Concomitant]

REACTIONS (10)
  - DRUG TOXICITY [None]
  - INFLAMMATION [None]
  - MULTIPLE DRUG OVERDOSE [None]
  - PLEURAL ADHESION [None]
  - PULMONARY ARTERY THROMBOSIS [None]
  - PULMONARY EMBOLISM [None]
  - PULMONARY GRANULOMA [None]
  - SUBCUTANEOUS ABSCESS [None]
  - VASCULAR INJURY [None]
  - VASCULITIS [None]
